FAERS Safety Report 10004727 (Version 1)
Quarter: 2014Q1

REPORT INFORMATION
  Report Type: Spontaneous
  Country: US (occurrence: US)
  Receive Date: 20140312
  Receipt Date: 20140312
  Transmission Date: 20141002
  Serious: Yes (Hospitalization)
  Sender: FDA-Public Use
  Company Number: PHHY2014US026390

PATIENT
  Age: 61 Year
  Sex: Male

DRUGS (2)
  1. WARFARIN [Suspect]
     Dosage: 5 MG, BID
  2. RANITIDINE [Suspect]
     Dosage: 150 MG, BID
     Route: 048

REACTIONS (9)
  - Haematuria [Unknown]
  - Epistaxis [Unknown]
  - Abdominal pain [Unknown]
  - Gastrooesophageal reflux disease [Unknown]
  - Concomitant disease aggravated [Unknown]
  - Lower gastrointestinal haemorrhage [Unknown]
  - Pelvic discomfort [Unknown]
  - Accidental exposure to product [Unknown]
  - Drug dispensing error [Unknown]
